FAERS Safety Report 4589886-8 (Version None)
Quarter: 2005Q1

REPORT INFORMATION
  Report Type: 
  Country: None (occurrence: None)
  Receive Date: 20050223
  Receipt Date: 20050121
  Transmission Date: 20050727
  Serious: Yes (Hospitalization, Other)
  Sender: FDA-Public Use
  Company Number: US-MERCK-0501USA03420

PATIENT
  Age: 46 Year
  Sex: Female

DRUGS (9)
  1. VIOXX [Suspect]
     Indication: EPICONDYLITIS
     Route: 048
     Dates: start: 20010507, end: 20010509
  2. VIOXX [Suspect]
     Route: 048
     Dates: start: 20010510
  3. NEURONTIN [Concomitant]
     Route: 065
     Dates: start: 20010501
  4. NEURONTIN [Concomitant]
     Route: 065
     Dates: start: 20010701
  5. LORTAB [Concomitant]
     Route: 065
  6. EFFEXOR [Concomitant]
     Route: 065
  7. MAXAIR [Concomitant]
     Route: 065
  8. VIVELLE [Concomitant]
     Route: 065
  9. XANAX [Concomitant]
     Route: 065

REACTIONS (49)
  - ARTHRALGIA [None]
  - ASTHENIA [None]
  - ATELECTASIS [None]
  - BACK PAIN [None]
  - BLOOD CHOLESTEROL INCREASED [None]
  - BRONCHOSPASM [None]
  - BURSITIS [None]
  - CARPAL TUNNEL SYNDROME [None]
  - CEREBROVASCULAR ACCIDENT [None]
  - CHEST DISCOMFORT [None]
  - CHEST PAIN [None]
  - CHRONIC OBSTRUCTIVE PULMONARY DISEASE [None]
  - DECREASED APPETITE [None]
  - DEPRESSION [None]
  - DIARRHOEA [None]
  - DIPLOPIA [None]
  - DIZZINESS [None]
  - DYSARTHRIA [None]
  - DYSPEPSIA [None]
  - DYSPHAGIA [None]
  - DYSPHEMIA [None]
  - DYSPHORIA [None]
  - EAR PAIN [None]
  - ELECTROCARDIOGRAM ST-T SEGMENT DEPRESSION [None]
  - EPIGASTRIC DISCOMFORT [None]
  - EPISTAXIS [None]
  - EXTRASYSTOLES [None]
  - FATIGUE [None]
  - HOT FLUSH [None]
  - HYPERHIDROSIS [None]
  - HYPERTENSION [None]
  - INSOMNIA [None]
  - IRRITABLE BOWEL SYNDROME [None]
  - MUSCLE SPASMS [None]
  - NAUSEA [None]
  - NECK PAIN [None]
  - NIGHT SWEATS [None]
  - OSTEOARTHRITIS [None]
  - PAIN [None]
  - PULMONARY FIBROSIS [None]
  - SPINAL COLUMN STENOSIS [None]
  - SPINAL OSTEOARTHRITIS [None]
  - STRESS [None]
  - TRANSIENT ISCHAEMIC ATTACK [None]
  - VIRAL INFECTION [None]
  - VISION BLURRED [None]
  - VOMITING [None]
  - WEIGHT DECREASED [None]
  - WHITE BLOOD CELL COUNT INCREASED [None]
